FAERS Safety Report 5174336-3 (Version None)
Quarter: 2006Q4

REPORT INFORMATION
  Report Type: 
  Country: None (occurrence: None)
  Receive Date: 20061214
  Receipt Date: 20060824
  Transmission Date: 20070319
  Serious: Yes (Hospitalization, Other)
  Sender: FDA-Public Use
  Company Number: US-ELI_LILLY_AND_COMPANY-US200609000340

PATIENT
  Sex: Female
  Weight: 80.725 kg

DRUGS (2)
  1. ZYPREXA [Suspect]
     Indication: BIPOLAR DISORDER
     Dosage: 20 MG, UNK
     Dates: start: 19980101, end: 20060101
  2. ZYPREXA [Suspect]
     Dosage: 30 MG, UNK
     Dates: start: 19980101, end: 20060101

REACTIONS (8)
  - ACETONAEMIA [None]
  - DIABETES MELLITUS [None]
  - DIABETIC KETOACIDOSIS [None]
  - GLYCOSURIA [None]
  - HEPATITIS VIRAL [None]
  - KETONURIA [None]
  - METABOLIC DISORDER [None]
  - PRESCRIBED OVERDOSE [None]
